FAERS Safety Report 6384780-4 (Version None)
Quarter: 2009Q4

REPORT INFORMATION
  Report Type: 
  Country: None (occurrence: None)
  Receive Date: 20091001
  Receipt Date: 20090928
  Transmission Date: 20100525
  Serious: Yes (Hospitalization)
  Sender: FDA-Public Use
  Company Number: US-AMGEN-US366632

PATIENT
  Sex: Female

DRUGS (10)
  1. NPLATE [Suspect]
     Indication: IDIOPATHIC THROMBOCYTOPENIC PURPURA
     Route: 058
     Dates: start: 20090601
  2. VYTORIN [Concomitant]
     Route: 048
  3. ATENOLOL [Concomitant]
     Route: 048
  4. PROZAC [Concomitant]
     Route: 048
  5. DIOVAN HCT [Concomitant]
     Route: 048
  6. PEPCID [Concomitant]
     Route: 048
  7. PROTONIX [Concomitant]
     Route: 048
  8. NORVASC [Concomitant]
     Route: 048
  9. AMBIEN [Concomitant]
     Route: 048
  10. INSULIN [Concomitant]
     Route: 048

REACTIONS (10)
  - ARTHRALGIA [None]
  - ASTHENIA [None]
  - DIZZINESS [None]
  - GASTRIC POLYPS [None]
  - HEADACHE [None]
  - MUSCULOSKELETAL PAIN [None]
  - MYALGIA [None]
  - PAIN [None]
  - PARAESTHESIA [None]
  - SKIN INFECTION [None]
